FAERS Safety Report 19284825 (Version 1)
Quarter: 2021Q2

REPORT INFORMATION
  Report Type: Spontaneous
  Country: BR (occurrence: BR)
  Receive Date: 20210521
  Receipt Date: 20210521
  Transmission Date: 20210717
  Serious: Yes (Other)
  Sender: FDA-Public Use
  Company Number: BR-TAKEDA-2021TUS031644

PATIENT
  Age: 38 Year
  Sex: Female

DRUGS (2)
  1. VEDOLIZUMAB [Suspect]
     Active Substance: VEDOLIZUMAB
     Indication: COLITIS
     Dosage: UNK
     Route: 065
  2. MESACOL [MESALAZINE] [Suspect]
     Active Substance: MESALAMINE
     Indication: COLITIS
     Dosage: UNK
     Route: 065

REACTIONS (2)
  - Condition aggravated [Unknown]
  - Colitis [Unknown]
